FAERS Safety Report 24524030 (Version 3)
Quarter: 2025Q2

REPORT INFORMATION
  Report Type: Spontaneous
  Country: US (occurrence: US)
  Receive Date: 20241018
  Receipt Date: 20250429
  Transmission Date: 20250716
  Serious: Yes (Death, Life-Threatening, Hospitalization, Other)
  Sender: RIGEL PHARMACEUTICALS
  Company Number: US-RIGEL Pharmaceuticals, INC-20241000128

PATIENT
  Age: 53 Year
  Sex: Female
  Weight: 45 kg

DRUGS (2)
  1. GAVRETO [Suspect]
     Active Substance: PRALSETINIB
     Indication: Lung neoplasm malignant
     Dosage: 400 MILLIGRAM, QD
     Route: 048
     Dates: start: 20221121
  2. VFEND [Concomitant]
     Active Substance: VORICONAZOLE
     Indication: Fungal infection
     Dates: start: 20240511, end: 20240530

REACTIONS (9)
  - Hospitalisation [Fatal]
  - Cholecystitis acute [Recovering/Resolving]
  - Pain [Not Recovered/Not Resolved]
  - Hypoxia [Not Recovered/Not Resolved]
  - Heart rate increased [Not Recovered/Not Resolved]
  - Cholelithiasis [Recovered/Resolved]
  - Pleural effusion [Not Recovered/Not Resolved]
  - Diarrhoea [Recovered/Resolved]
  - Back pain [Not Recovered/Not Resolved]

NARRATIVE: CASE EVENT DATE: 20240301
